FAERS Safety Report 15478059 (Version 1)
Quarter: 2018Q4

REPORT INFORMATION
  Report Type: Spontaneous
  Country: US (occurrence: US)
  Receive Date: 20181002
  Receipt Date: 20181002
  Transmission Date: 20190205
  Serious: No
  Sender: FDA-Public Use
  Company Number: None

PATIENT
  Age: 50 Year
  Sex: Male

DRUGS (1)
  1. VANCOMYCIN [Suspect]
     Active Substance: VANCOMYCIN
     Route: 042
     Dates: start: 20180810, end: 20180926

REACTIONS (4)
  - Therapy cessation [None]
  - Tinnitus [None]
  - Chromaturia [None]
  - Rash [None]

NARRATIVE: CASE EVENT DATE: 20180925
